FAERS Safety Report 24891396 (Version 2)
Quarter: 2025Q1

REPORT INFORMATION
  Report Type: Report from Study
  Country: FR (occurrence: FR)
  Receive Date: 20250127
  Receipt Date: 20250128
  Transmission Date: 20250409
  Serious: Yes (Death, Other)
  Sender: PFIZER
  Company Number: FR-GSKJP-FR2024GSK163428AA

PATIENT
  Age: 73 Year
  Sex: Female

DRUGS (3)
  1. CARBOPLATIN [Suspect]
     Active Substance: CARBOPLATIN
     Indication: Cervix neoplasm
     Dates: start: 20241127, end: 20241212
  2. PACLITAXEL [Suspect]
     Active Substance: PACLITAXEL
     Indication: Endometrial cancer
     Dates: start: 20241127, end: 20241212
  3. DOSTARLIMAB [Suspect]
     Active Substance: DOSTARLIMAB
     Indication: Endometrial cancer
     Dosage: 500 MG, Q3W
     Dates: start: 20241127, end: 20241212

REACTIONS (5)
  - Neoplasm progression [Fatal]
  - Cholestasis [Unknown]
  - Condition aggravated [Unknown]
  - Hepatic cytolysis [Unknown]
  - Jaundice [Unknown]

NARRATIVE: CASE EVENT DATE: 20241212
